FAERS Safety Report 16410987 (Version 4)
Quarter: 2019Q4

REPORT INFORMATION
  Report Type: Spontaneous
  Country: US (occurrence: US)
  Receive Date: 20190610
  Receipt Date: 20191016
  Transmission Date: 20200122
  Serious: Yes (Other)
  Sender: FDA-Public Use
  Company Number: US-GLAXOSMITHKLINE-US2019GSK103043

PATIENT
  Sex: Male

DRUGS (4)
  1. PREVACID [Suspect]
     Active Substance: LANSOPRAZOLE
     Indication: GASTROOESOPHAGEAL REFLUX DISEASE
     Dosage: 40 MG, BID
     Route: 065
  2. LANSOPRAZOLE. [Suspect]
     Active Substance: LANSOPRAZOLE
     Indication: PRODUCT USED FOR UNKNOWN INDICATION
     Dosage: UNK
     Route: 065
  3. PANTOPRAZOLE [Suspect]
     Active Substance: PANTOPRAZOLE
     Indication: PRODUCT USED FOR UNKNOWN INDICATION
     Dosage: 40 MG, QD
     Route: 048
  4. OMEPRAZOLE. [Suspect]
     Active Substance: OMEPRAZOLE
     Indication: GASTROOESOPHAGEAL REFLUX DISEASE
     Dosage: 40 MG, BID
     Route: 048

REACTIONS (18)
  - Renal impairment [Unknown]
  - Acute kidney injury [Unknown]
  - Tubulointerstitial nephritis [Unknown]
  - Nephrocalcinosis [Unknown]
  - Renal injury [Unknown]
  - Rebound effect [Unknown]
  - Proteinuria [Unknown]
  - Renal failure [Unknown]
  - Hyperchlorhydria [Unknown]
  - Dysuria [Unknown]
  - Chronic kidney disease [Unknown]
  - Nephrolithiasis [Unknown]
  - Renal cyst [Unknown]
  - Diabetic nephropathy [Unknown]
  - Pollakiuria [Unknown]
  - Polyuria [Unknown]
  - Lower urinary tract symptoms [Unknown]
  - Nocturia [Unknown]
